FAERS Safety Report 6062098-7 (Version None)
Quarter: 2009Q1

REPORT INFORMATION
  Report Type: 
  Country: None (occurrence: None)
  Receive Date: 20090203
  Receipt Date: 20071119
  Transmission Date: 20090719
  Serious: No
  Sender: FDA-Public Use
  Company Number: US-BAYER-US-2007-043201

PATIENT
  Age: 40 Year
  Sex: Female
  Weight: 54 kg

DRUGS (4)
  1. MIRENA [Suspect]
     Route: 015
     Dates: start: 20070423, end: 20071101
  2. SEROQUEL [Concomitant]
     Route: 048
  3. TRILEPTAL [Concomitant]
     Route: 048
  4. CLOZAPINE [Concomitant]
     Route: 048

REACTIONS (1)
  - PAIN IN EXTREMITY [None]
